FAERS Safety Report 9742024 (Version 2)
Quarter: 2013Q4

REPORT INFORMATION
  Report Type: Spontaneous
  Country: BR (occurrence: BR)
  Receive Date: 20131210
  Receipt Date: 20131227
  Transmission Date: 20140711
  Serious: Yes (Hospitalization, Other)
  Sender: FDA-Public Use
  Company Number: BR-BAYER-2013-146568

PATIENT
  Age: 34 Year
  Sex: Female
  Weight: 70 kg

DRUGS (2)
  1. CIPRO [Suspect]
     Indication: ENDOMETRITIS
     Dosage: 1 DF, QD
     Route: 048
     Dates: start: 201108, end: 2011
  2. MIRENA [Suspect]
     Indication: ENDOMETRIOSIS
     Dosage: 20 ?G, CONT
     Route: 015
     Dates: start: 20110211, end: 201108

REACTIONS (10)
  - Hypersensitivity [Recovered/Resolved]
  - Vaginal haemorrhage [Recovered/Resolved]
  - Laryngeal obstruction [Recovered/Resolved]
  - Endometritis [Recovered/Resolved]
  - Dyspnoea [Recovered/Resolved]
  - Abdominal pain [Recovered/Resolved]
  - Off label use [None]
  - Medical device discomfort [Recovered/Resolved]
  - Device expulsion [Recovered/Resolved]
  - Rash papular [Recovered/Resolved]
